FAERS Safety Report 14155630 (Version 1)
Quarter: 2017Q4

REPORT INFORMATION
  Report Type: Spontaneous
  Country: CA (occurrence: CA)
  Receive Date: 20171103
  Receipt Date: 20171103
  Transmission Date: 20180321
  Serious: Yes (Other)
  Sender: FDA-Public Use
  Company Number: CA-ROCHE-2014033

PATIENT
  Age: 73 Year
  Sex: Female

DRUGS (14)
  1. VITAMIN B12 [Concomitant]
     Active Substance: CYANOCOBALAMIN
     Route: 065
  2. ORENCIA [Suspect]
     Active Substance: ABATACEPT
     Indication: PRODUCT USED FOR UNKNOWN INDICATION
     Route: 065
     Dates: end: 20170921
  3. NITRO SPRAY (NO OTHER INFORMATION IS AVAILABLE) [Concomitant]
  4. METOPROLOL. [Concomitant]
     Active Substance: METOPROLOL
  5. RANITIDINE. [Concomitant]
     Active Substance: RANITIDINE
  6. ASA [Concomitant]
     Active Substance: ASPIRIN
     Route: 065
  7. VALSARTAN. [Concomitant]
     Active Substance: VALSARTAN
  8. SIMVASTATIN. [Concomitant]
     Active Substance: SIMVASTATIN
  9. LEUCOVORIN. [Concomitant]
     Active Substance: LEUCOVORIN
     Route: 065
  10. CLARITIN [Concomitant]
     Active Substance: LORATADINE
  11. ACTEMRA [Suspect]
     Active Substance: TOCILIZUMAB
     Indication: PRODUCT USED FOR UNKNOWN INDICATION
     Route: 065
  12. TYLENOL ARTHRITIS PAIN [Concomitant]
     Active Substance: ACETAMINOPHEN
  13. CELEBREX [Concomitant]
     Active Substance: CELECOXIB
  14. METHOTREXATE. [Concomitant]
     Active Substance: METHOTREXATE
     Dosage: 8 TABLETS ONCE A WEEK
     Route: 065

REACTIONS (5)
  - Back disorder [Unknown]
  - Angina pectoris [Unknown]
  - Drug ineffective [Unknown]
  - Bronchitis [Unknown]
  - Pneumonia [Unknown]
